FAERS Safety Report 4908404-5 (Version None)
Quarter: 2006Q1

REPORT INFORMATION
  Report Type: 
  Country: None (occurrence: None)
  Receive Date: 20060210
  Receipt Date: 20060126
  Transmission Date: 20060701
  Serious: Yes (Other)
  Sender: FDA-Public Use
  Company Number: CA-JNJFOC-20060202336

PATIENT
  Age: 70 Year
  Sex: Male

DRUGS (4)
  1. GALANTAMINE HYDROBROMIDE [Suspect]
  2. GALANTAMINE HYDROBROMIDE [Suspect]
     Indication: DEMENTIA
  3. DONEPEZIL HCL [Suspect]
  4. DONEPEZIL HCL [Suspect]
     Indication: DRUG USE FOR UNKNOWN INDICATION

REACTIONS (3)
  - DISTURBANCE IN ATTENTION [None]
  - DYSKINESIA [None]
  - RESTLESSNESS [None]
